FAERS Safety Report 9425337 (Version 3)
Quarter: 2013Q3

REPORT INFORMATION
  Report Type: Spontaneous
  Country: US (occurrence: US)
  Receive Date: 20130725
  Receipt Date: 20130906
  Transmission Date: 20140515
  Serious: Yes (Other)
  Sender: FDA-Public Use
  Company Number: 2013-307

PATIENT
  Age: 48 Year
  Sex: Female

DRUGS (10)
  1. PRIALT [Suspect]
     Indication: PAIN
     Dosage: UNK MCG, ONCE/HOUR, INTRATHECAL
     Route: 037
  2. PRIALT [Suspect]
     Indication: NEURITIS
     Dosage: UNK MCG, ONCE/HOUR, INTRATHECAL
     Route: 037
  3. DILAUDID [Suspect]
     Indication: NEURITIS
     Route: 037
  4. DILAUDID [Suspect]
     Indication: PAIN
     Route: 037
  5. BUPIVACAINE HYDROCHLORIDE [Suspect]
     Indication: NEURITIS
     Dosage: UNK MG, ONCE/HOUR, INTRATHECAL
     Route: 037
     Dates: end: 201307
  6. BUPIVACAINE HYDROCHLORIDE [Suspect]
     Indication: PAIN
     Dosage: UNK MG, ONCE/HOUR, INTRATHECAL
     Route: 037
     Dates: end: 201307
  7. CLONIDINE [Suspect]
     Indication: NEURITIS
     Dosage: UNK MCG, ONCE/HOUR, INTRATHECAL
     Route: 037
     Dates: end: 201307
  8. CLONIDINE [Suspect]
     Indication: PAIN
     Dosage: UNK MCG, ONCE/HOUR, INTRATHECAL
     Route: 037
     Dates: end: 201307
  9. BACLOFEN (BACLOFEN) INJECTION [Suspect]
     Indication: NEURITIS
     Dosage: UNKMCG, ONCE/HOUR, INTRATHECAL
     Route: 037
  10. BACLOFEN (BACLOFEN) INJECTION [Suspect]
     Indication: PAIN
     Dosage: UNKMCG, ONCE/HOUR, INTRATHECAL
     Route: 037

REACTIONS (5)
  - Surgery [None]
  - Malaise [None]
  - Device issue [None]
  - Pain [None]
  - Procedural complication [None]
